FAERS Safety Report 9123083 (Version 1)
Quarter: 2013Q1

REPORT INFORMATION
  Report Type: Spontaneous
  Country: US (occurrence: US)
  Receive Date: 20130115
  Receipt Date: 20130115
  Transmission Date: 20140127
  Serious: Yes (Other)
  Sender: FDA-Public Use
  Company Number: US-BAYER-2013-004290

PATIENT
  Sex: 0

DRUGS (3)
  1. BETASERON [Suspect]
  2. COPAXONE [Suspect]
  3. REBIF [Suspect]

REACTIONS (3)
  - Multiple sclerosis relapse [None]
  - Multiple sclerosis [None]
  - Adverse drug reaction [None]
